FAERS Safety Report 7834482-X (Version None)
Quarter: 2011Q4

REPORT INFORMATION
  Report Type: 
  Country: None (occurrence: None)
  Receive Date: 20111024
  Receipt Date: 20111018
  Transmission Date: 20120403
  Serious: Yes (Death, Hospitalization)
  Sender: FDA-Public Use
  Company Number: US-GENZYME-MOZO-1000579

PATIENT
  Sex: Male

DRUGS (2)
  1. MOZOBIL [Suspect]
     Indication: ACUTE MYELOID LEUKAEMIA
     Dosage: UNK
     Route: 042
     Dates: end: 20111008
  2. DECITABINE [Concomitant]
     Indication: ACUTE MYELOID LEUKAEMIA
     Dosage: 20 MG/M2, QD
     Route: 042
     Dates: end: 20111008

REACTIONS (6)
  - PYREXIA [None]
  - DIARRHOEA [None]
  - RESPIRATORY FAILURE [None]
  - MUSCLE HAEMORRHAGE [None]
  - METABOLIC ACIDOSIS [None]
  - PNEUMONIA [None]
